FAERS Safety Report 9925900 (Version 1)
Quarter: 2014Q1

REPORT INFORMATION
  Report Type: Spontaneous
  Country: DE (occurrence: DE)
  Receive Date: 20140226
  Receipt Date: 20140226
  Transmission Date: 20141002
  Serious: Yes (Congenital Anomaly)
  Sender: FDA-Public Use
  Company Number: DE-TEVA-462432GER

PATIENT
  Age: 1 Day
  Sex: Female

DRUGS (4)
  1. VENLAFAXINE [Suspect]
     Indication: POST-TRAUMATIC STRESS DISORDER
     Route: 064
  2. FEMIBION SCHWANGERSCHAFT 1 [Concomitant]
     Indication: PROPHYLAXIS OF NEURAL TUBE DEFECT
     Route: 064
  3. METRONIDAZOL [Concomitant]
     Indication: URINARY TRACT INFECTION
     Route: 064
  4. CEFUROXIM [Concomitant]
     Indication: URINARY TRACT INFECTION
     Route: 064

REACTIONS (2)
  - Haemangioma congenital [Recovering/Resolving]
  - Naevus flammeus [Unknown]
